FAERS Safety Report 11012546 (Version 1)
Quarter: 2015Q2

REPORT INFORMATION
  Report Type: Spontaneous
  Country: US (occurrence: None)
  Receive Date: 20150407
  Receipt Date: 20150407
  Transmission Date: 20150821
  Serious: Yes (Other)
  Sender: FDA-Public Use
  Company Number: LH201400419

PATIENT
  Age: 29 Year
  Sex: Female

DRUGS (9)
  1. MAKENA [Suspect]
     Active Substance: HYDROXYPROGESTERONE CAPROATE
     Indication: PREMATURE DELIVERY
     Route: 030
     Dates: start: 201406, end: 20141014
  2. ERGOCALCIFEROL. [Concomitant]
     Active Substance: ERGOCALCIFEROL
  3. NICOTANAMIDE [Concomitant]
  4. RETINOL PALMATATE [Concomitant]
  5. RIBOFLAVIN [Concomitant]
     Active Substance: RIBOFLAVIN
  6. THIAMINE MONONITRATE [Concomitant]
     Active Substance: THIAMINE MONONITRATE
  7. PRENATAL VITAMINS (ASCORBIC ACID, CALCIUM PANTOTHENATE, CYANOCOBALAMIN, ERGOCALCIFEROL, NICTOINAMIDE, PYRIDOXINE HYDROCHLORIDE, RETINOL PALMITATE, RIBOFLAVIN, THIAMINE MONONITRATE) [Concomitant]
  8. CYANOCOBALMIN [Concomitant]
  9. PYRODOXIN HYDROCHLORIDE [Concomitant]

REACTIONS (2)
  - Premature labour [None]
  - Premature delivery [None]

NARRATIVE: CASE EVENT DATE: 20141017
